FAERS Safety Report 8352729-0 (Version None)
Quarter: 2012Q2

REPORT INFORMATION
  Report Type: 
  Country: None (occurrence: None)
  Receive Date: 20120511
  Receipt Date: 20120510
  Transmission Date: 20120825
  Serious: No
  Sender: FDA-Public Use
  Company Number: US-BAYER-2012-046012

PATIENT
  Sex: Male
  Weight: 98 kg

DRUGS (4)
  1. BETASERON [Suspect]
     Dosage: 1 ML, QOD
     Route: 058
  2. SYNTHROID [Concomitant]
     Dosage: 50 MCG
  3. MULTI-VITAMIN [Concomitant]
  4. NUVIGIL [Concomitant]
     Dosage: 250 MCG

REACTIONS (1)
  - INJECTION SITE RASH [None]
